FAERS Safety Report 6976231-3 (Version None)
Quarter: 2010Q3

REPORT INFORMATION
  Report Type: 
  Country: None (occurrence: None)
  Receive Date: 20100910
  Receipt Date: 20090414
  Transmission Date: 20110219
  Serious: No
  Sender: FDA-Public Use
  Company Number: US-WYE-H08952009

PATIENT
  Sex: Female

DRUGS (2)
  1. PRISTIQ [Suspect]
     Indication: SLEEP DISORDER
     Route: 048
     Dates: start: 20090201
  2. PRISTIQ [Suspect]
     Indication: ANXIETY

REACTIONS (5)
  - ANORGASMIA [None]
  - CONSTIPATION [None]
  - DRUG EFFECT DECREASED [None]
  - ORGASM ABNORMAL [None]
  - URINARY HESITATION [None]
